FAERS Safety Report 11841519 (Version 1)
Quarter: 2015Q4

REPORT INFORMATION
  Report Type: Spontaneous
  Country: TR (occurrence: TR)
  Receive Date: 20151216
  Receipt Date: 20151216
  Transmission Date: 20160305
  Serious: Yes (Hospitalization)
  Sender: FDA-Public Use
  Company Number: TR-MYLANLABS-2015M1044611

PATIENT

DRUGS (1)
  1. METHIMAZOLE MYLAN [Suspect]
     Active Substance: METHIMAZOLE
     Indication: HYPERTHYROIDISM
     Dosage: 25 MG PER DAY
     Route: 065

REACTIONS (1)
  - Serum sickness [Recovering/Resolving]
